FAERS Safety Report 15224759 (Version 1)
Quarter: 2018Q3

REPORT INFORMATION
  Report Type: Spontaneous
  Country: US (occurrence: US)
  Receive Date: 20180731
  Receipt Date: 20180731
  Transmission Date: 20181010
  Serious: No
  Sender: FDA-Public Use
  Company Number: US-BIOGEN-2015BI015420

PATIENT
  Age: 64 Year
  Sex: Female

DRUGS (3)
  1. TECFIDERA [Suspect]
     Active Substance: DIMETHYL FUMARATE
     Dosage: MAINTENANCE DOSE
     Route: 048
  2. TECFIDERA [Suspect]
     Active Substance: DIMETHYL FUMARATE
     Indication: MULTIPLE SCLEROSIS
     Dosage: STARTING DOSE
     Route: 048
     Dates: start: 20140429, end: 20140505
  3. TECFIDERA [Suspect]
     Active Substance: DIMETHYL FUMARATE
     Dosage: MAINTENANCE DOSE
     Route: 048
     Dates: start: 20140506

REACTIONS (13)
  - Malaise [Unknown]
  - Paraesthesia [Not Recovered/Not Resolved]
  - Cough [Not Recovered/Not Resolved]
  - Flushing [Not Recovered/Not Resolved]
  - Nasopharyngitis [Not Recovered/Not Resolved]
  - Ear infection [Recovered/Resolved]
  - Gastrointestinal disorder [Not Recovered/Not Resolved]
  - Asthma [Recovered/Resolved]
  - Cholelithiasis [Not Recovered/Not Resolved]
  - Influenza [Recovered/Resolved]
  - White blood cell count decreased [Not Recovered/Not Resolved]
  - Throat irritation [Not Recovered/Not Resolved]
  - Erythema [Recovered/Resolved]

NARRATIVE: CASE EVENT DATE: 20140429
